FAERS Safety Report 10982970 (Version 2)
Quarter: 2015Q2

REPORT INFORMATION
  Report Type: Report from Study
  Country: CA (occurrence: CA)
  Receive Date: 20150403
  Receipt Date: 20150508
  Transmission Date: 20150821
  Serious: Yes (Hospitalization)
  Sender: FDA-Public Use
  Company Number: CA-JNJFOC-20150313209

PATIENT
  Age: 53 Year
  Sex: Female
  Weight: 119.8 kg

DRUGS (1)
  1. STELARA [Suspect]
     Active Substance: USTEKINUMAB
     Indication: PSORIASIS
     Route: 058
     Dates: start: 20060216

REACTIONS (1)
  - Endometrial cancer stage II [Recovered/Resolved]

NARRATIVE: CASE EVENT DATE: 20141208
